FAERS Safety Report 23474352 (Version 1)
Quarter: 2024Q1

REPORT INFORMATION
  Report Type: Spontaneous
  Country: FR (occurrence: FR)
  Receive Date: 20240204
  Receipt Date: 20240204
  Transmission Date: 20240409
  Serious: Yes (Other)
  Sender: FDA-Public Use
  Company Number: FR-EXELIXIS-CABO-23061906

PATIENT

DRUGS (1)
  1. CABOMETYX [Suspect]
     Active Substance: CABOZANTINIB S-MALATE
     Indication: Osteosarcoma
     Dosage: UNK, QD
     Route: 048

REACTIONS (2)
  - Metastases to lung [Unknown]
  - Therapy partial responder [Unknown]
